FAERS Safety Report 5214894-3 (Version None)
Quarter: 2007Q1

REPORT INFORMATION
  Report Type: 
  Country: None (occurrence: None)
  Receive Date: 20061108
  Receipt Date: 20050922
  Transmission Date: 20070707
  Serious: Yes (Other)
  Sender: FDA-Public Use
  Company Number: PHEH2005US10539

PATIENT
  Sex: Female

DRUGS (4)
  1. ESTRADERM [Suspect]
  2. ESTROGEN (ESTROGENS) UNKNOWN [Suspect]
  3. PROGESTIN INJ [Suspect]
  4. MEDROXYPROGESTERONE ACETATE [Suspect]

REACTIONS (12)
  - ANXIETY [None]
  - BIOPSY BREAST [None]
  - BREAST CANCER [None]
  - BREAST LUMP REMOVAL [None]
  - CEREBROVASCULAR ACCIDENT [None]
  - EMBOLISM [None]
  - EMOTIONAL DISTRESS [None]
  - MASTECTOMY [None]
  - MYOCARDIAL INFARCTION [None]
  - OVARIAN CANCER [None]
  - PHYSICAL DISABILITY [None]
  - SCAR [None]
